FAERS Safety Report 23972755 (Version 1)
Quarter: 2024Q2

REPORT INFORMATION
  Report Type: Spontaneous
  Country: US (occurrence: None)
  Receive Date: 20240613
  Receipt Date: 20240613
  Transmission Date: 20240716
  Serious: Yes (Life-Threatening)
  Sender: FDA-Public Use
  Company Number: None

PATIENT
  Age: 23 Year
  Sex: Female
  Weight: 63 kg

DRUGS (3)
  1. NALTREXONE [Suspect]
     Active Substance: NALTREXONE
     Indication: Back pain
     Dosage: OTHER QUANTITY : 1 TABLET(S);?
     Route: 048
     Dates: start: 20240508, end: 20240515
  2. TIZANIDINE [Concomitant]
     Active Substance: TIZANIDINE
  3. VITAMINS [Concomitant]
     Active Substance: VITAMINS

REACTIONS (5)
  - Suicidal ideation [None]
  - Prescribed overdose [None]
  - Incorrect dose administered [None]
  - Generalised anxiety disorder [None]
  - Major depression [None]

NARRATIVE: CASE EVENT DATE: 20240515
